FAERS Safety Report 22311869 (Version 1)
Quarter: 2023Q2

REPORT INFORMATION
  Report Type: Spontaneous
  Country: ID (occurrence: ID)
  Receive Date: 20230512
  Receipt Date: 20230512
  Transmission Date: 20230721
  Serious: Yes (Other)
  Sender: FDA-Public Use
  Company Number: ID-JNJFOC-20230504006

PATIENT
  Age: 22 Year
  Sex: Female

DRUGS (3)
  1. SPRAVATO [Suspect]
     Active Substance: ESKETAMINE
     Indication: Major depression
     Dosage: 84 MG, 2 TOTAL DOSES, WEEK 1
     Dates: start: 20221115, end: 20221117
  2. SPRAVATO [Suspect]
     Active Substance: ESKETAMINE
     Indication: Bipolar II disorder
     Dosage: 84 MG, 2 TOTAL DOSES, WEEK 2
     Dates: start: 20221121, end: 20221123
  3. SPRAVATO [Suspect]
     Active Substance: ESKETAMINE
     Dosage: 56 MG, 3 TOTAL DOSES, WEEK 3 AND 4
     Dates: start: 20221206, end: 20221220

REACTIONS (6)
  - Intentional self-injury [Unknown]
  - Hallucination, auditory [Recovered/Resolved]
  - Blood pressure increased [Recovered/Resolved]
  - Self-injurious ideation [Recovered/Resolved]
  - Flat affect [Recovering/Resolving]
  - Off label use [Unknown]

NARRATIVE: CASE EVENT DATE: 20221101
